FAERS Safety Report 16262320 (Version 3)
Quarter: 2019Q2

REPORT INFORMATION
  Report Type: Spontaneous
  Country: US (occurrence: US)
  Receive Date: 20190501
  Receipt Date: 20190502
  Transmission Date: 20190711
  Serious: Yes (Other)
  Sender: FDA-Public Use
  Company Number: US-CELGENEUS-USA-20190410479

PATIENT
  Age: 82 Year
  Sex: Female

DRUGS (1)
  1. REVLIMID [Suspect]
     Active Substance: LENALIDOMIDE
     Indication: PLASMA CELL MYELOMA
     Dosage: 2.5 MILLIGRAM
     Route: 048
     Dates: start: 201806

REACTIONS (10)
  - Erythema [Unknown]
  - Superficial vein prominence [Unknown]
  - Epistaxis [Recovered/Resolved]
  - Neck pain [Unknown]
  - Thrombosis [Unknown]
  - Peripheral swelling [Unknown]
  - Renal disorder [Unknown]
  - Pain [Unknown]
  - Headache [Recovered/Resolved]
  - Musculoskeletal disorder [Unknown]

NARRATIVE: CASE EVENT DATE: 2019
